FAERS Safety Report 15237236 (Version 1)
Quarter: 2018Q3

REPORT INFORMATION
  Report Type: Spontaneous
  Country: CA (occurrence: CA)
  Receive Date: 20180803
  Receipt Date: 20180803
  Transmission Date: 20181010
  Serious: Yes (Death, Other)
  Sender: FDA-Public Use
  Company Number: CA-JNJFOC-20180738341

PATIENT
  Age: 68 Year
  Sex: Male
  Weight: 95 kg

DRUGS (4)
  1. IMBRUVICA [Suspect]
     Active Substance: IBRUTINIB
     Indication: CHRONIC LYMPHOCYTIC LEUKAEMIA
     Route: 048
  2. ALENDRONATE [Concomitant]
     Active Substance: ALENDRONATE SODIUM
     Route: 065
  3. CHOLECALCIFEROL [Concomitant]
     Active Substance: CHOLECALCIFEROL
     Route: 065
  4. APO?PREDNISONE [Concomitant]
     Active Substance: PREDNISONE
     Route: 065

REACTIONS (24)
  - Fall [Unknown]
  - Lymphadenopathy [Unknown]
  - Respiration abnormal [Unknown]
  - Loss of consciousness [Unknown]
  - Blood pressure immeasurable [Unknown]
  - Shock [Unknown]
  - Dehydration [Unknown]
  - Hepatomegaly [Unknown]
  - Splenomegaly [Unknown]
  - Lymphoma [Unknown]
  - Anaemia [Unknown]
  - Blood glucose decreased [Unknown]
  - Renal injury [Unknown]
  - Presyncope [Unknown]
  - International normalised ratio increased [Unknown]
  - Orthostatic hypotension [Unknown]
  - Chronic lymphocytic leukaemia transformation [Fatal]
  - Blood count abnormal [Unknown]
  - Hypercalcaemia [Unknown]
  - Malaise [Unknown]
  - Musculoskeletal pain [Unknown]
  - Multiple organ dysfunction syndrome [Unknown]
  - Dyspnoea [Unknown]
  - Oedema peripheral [Unknown]
